FAERS Safety Report 19928487 (Version 1)
Quarter: 2021Q4

REPORT INFORMATION
  Report Type: Spontaneous
  Country: CN (occurrence: CN)
  Receive Date: 20211007
  Receipt Date: 20211007
  Transmission Date: 20220304
  Serious: Yes (Other)
  Sender: FDA-Public Use
  Company Number: CN-CELGENE-CHN-20211000590

PATIENT
  Age: 38 Year
  Sex: Female

DRUGS (6)
  1. ABRAXANE [Suspect]
     Active Substance: PACLITAXEL
     Indication: Cancer surgery
     Dosage: DOSE RECEIVED 1
     Route: 041
     Dates: start: 20210825, end: 20210825
  2. CARBOPLATIN [Suspect]
     Active Substance: CARBOPLATIN
     Indication: Cancer surgery
     Dosage: 500 MILLIGRAM
     Route: 065
     Dates: start: 20210825, end: 20210825
  3. TRASTUZUMAB [Suspect]
     Active Substance: TRASTUZUMAB
     Indication: Cancer surgery
     Dosage: 318 MILLIGRAM
     Route: 065
     Dates: start: 20210825, end: 20210825
  4. SODIUM CHLORIDE [Concomitant]
     Active Substance: SODIUM CHLORIDE
     Indication: Product used for unknown indication
     Route: 065
     Dates: start: 20210825, end: 20210825
  5. DEXTROSE [Concomitant]
     Active Substance: DEXTROSE
     Indication: Product used for unknown indication
     Route: 065
     Dates: start: 20210825, end: 20210825
  6. Granulocytes stimulating factor [Concomitant]
     Indication: Product used for unknown indication
     Route: 065
     Dates: start: 20210825, end: 20210825

REACTIONS (1)
  - Myelosuppression [Recovering/Resolving]

NARRATIVE: CASE EVENT DATE: 20210831
